FAERS Safety Report 6235572-8 (Version None)
Quarter: 2009Q2

REPORT INFORMATION
  Report Type: 
  Country: None (occurrence: None)
  Receive Date: 20090616
  Receipt Date: 20090608
  Transmission Date: 20091009
  Serious: Yes (Other)
  Sender: FDA-Public Use
  Company Number: SPV1-2009-00974

PATIENT
  Age: 19 Year
  Sex: Male
  Weight: 73.5 kg

DRUGS (2)
  1. LIALDA [Suspect]
     Indication: CROHN'S DISEASE
     Dosage: 4.8 G, 1X/DAY:QD, ORAL
     Route: 048
     Dates: start: 20080101
  2. LEVOTHYROXINE SODIUM [Concomitant]

REACTIONS (5)
  - BACK PAIN [None]
  - CROHN'S DISEASE [None]
  - DISEASE PROGRESSION [None]
  - IRON DEFICIENCY ANAEMIA [None]
  - OFF LABEL USE [None]
